FAERS Safety Report 5640411-X (Version None)
Quarter: 2008Q1

REPORT INFORMATION
  Report Type: 
  Country: None (occurrence: None)
  Receive Date: 20080227
  Receipt Date: 20080213
  Transmission Date: 20080703
  Serious: No
  Sender: FDA-Public Use
  Company Number: US-BAXTER-2008BH000765

PATIENT
  Age: 58 Year
  Sex: Female
  Weight: 127 kg

DRUGS (1)
  1. HEPARIN SODIUM [Suspect]
     Indication: PERITONEAL DIALYSIS
     Dosage: DOSE UNIT:UNKNOWN
     Route: 065
     Dates: start: 20070101

REACTIONS (2)
  - ABDOMINAL DISTENSION [None]
  - STOMACH DISCOMFORT [None]
